FAERS Safety Report 7038065-3 (Version None)
Quarter: 2010Q4

REPORT INFORMATION
  Report Type: 
  Country: None (occurrence: None)
  Receive Date: 20101011
  Receipt Date: 20101006
  Transmission Date: 20110411
  Serious: Yes (Other)
  Sender: FDA-Public Use
  Company Number: CL-PFIZER INC-2010126881

PATIENT
  Age: 49 Year
  Sex: Female

DRUGS (1)
  1. CELEBRA [Suspect]
     Indication: MYALGIA
     Route: 048

REACTIONS (2)
  - ARRHYTHMIA [None]
  - EXTRASYSTOLES [None]
